FAERS Safety Report 17729134 (Version 3)
Quarter: 2021Q1

REPORT INFORMATION
  Report Type: Report from Study
  Country: CA (occurrence: CA)
  Receive Date: 20200430
  Receipt Date: 20210202
  Transmission Date: 20210419
  Serious: Yes (Hospitalization)
  Sender: FDA-Public Use
  Company Number: CA-JNJFOC-20200339882

PATIENT
  Age: 26 Year
  Sex: Male
  Weight: 75.4 kg

DRUGS (3)
  1. REMICADE [Suspect]
     Active Substance: INFLIXIMAB
     Indication: CROHN^S DISEASE
     Route: 042
     Dates: start: 20180226
  2. REMICADE [Suspect]
     Active Substance: INFLIXIMAB
     Route: 042
     Dates: start: 20191118
  3. REMICADE [Suspect]
     Active Substance: INFLIXIMAB
     Route: 042
     Dates: start: 20210128

REACTIONS (3)
  - Blood iron decreased [Recovering/Resolving]
  - Intestinal obstruction [Recovering/Resolving]
  - Fistula [Recovering/Resolving]

NARRATIVE: CASE EVENT DATE: 202003
